FAERS Safety Report 23950899 (Version 1)
Quarter: 2024Q2

REPORT INFORMATION
  Report Type: Spontaneous
  Country: US (occurrence: None)
  Receive Date: 20240607
  Receipt Date: 20240607
  Transmission Date: 20240716
  Serious: Yes (Hospitalization)
  Sender: FDA-Public Use
  Company Number: None

PATIENT
  Age: 61 Year
  Sex: Female
  Weight: 62.55 kg

DRUGS (1)
  1. OCRELIZUMAB [Suspect]
     Active Substance: OCRELIZUMAB
     Indication: Multiple sclerosis
     Dosage: OTHER FREQUENCY : TWICE A YEAR;?
     Route: 041
     Dates: start: 20190101, end: 20231208

REACTIONS (2)
  - Pneumonia [None]
  - Mycobacterial infection [None]

NARRATIVE: CASE EVENT DATE: 20240301
